FAERS Safety Report 24176910 (Version 1)
Quarter: 2024Q3

REPORT INFORMATION
  Report Type: Spontaneous
  Country: US (occurrence: None)
  Receive Date: 20240806
  Receipt Date: 20240806
  Transmission Date: 20241016
  Serious: No
  Sender: ASTRAZENECA
  Company Number: 2024A173475

PATIENT

DRUGS (2)
  1. FARXIGA [Suspect]
     Active Substance: DAPAGLIFLOZIN PROPANEDIOL
     Route: 048
     Dates: start: 20240628
  2. OZEMPIC [Suspect]
     Active Substance: SEMAGLUTIDE
     Route: 048

REACTIONS (9)
  - Fear [Unknown]
  - Nausea [Unknown]
  - Constipation [Unknown]
  - Vision blurred [Unknown]
  - Anxiety [Unknown]
  - Decreased appetite [Unknown]
  - Thirst decreased [Unknown]
  - Malaise [Unknown]
  - Drug dependence [Unknown]
